FAERS Safety Report 23095185 (Version 1)
Quarter: 2023Q4

REPORT INFORMATION
  Report Type: Spontaneous
  Country: US (occurrence: US)
  Receive Date: 20231023
  Receipt Date: 20231023
  Transmission Date: 20240110
  Serious: No
  Sender: FDA-Public Use
  Company Number: US-MELINTA THERAPEUTICS, LLC-US-MLNT-23-00055

PATIENT
  Age: 45 Year
  Sex: Male
  Weight: 64.6 kg

DRUGS (20)
  1. VABOMERE [Suspect]
     Active Substance: MEROPENEM\VABORBACTAM
     Indication: Klebsiella infection
     Dosage: 2 GRAM, Q8H
     Route: 042
     Dates: start: 20230119, end: 20230124
  2. ACETAMINOPHEN [Concomitant]
     Active Substance: ACETAMINOPHEN
     Indication: Pain
     Dosage: 650 MILLIGRAM, PRN
     Route: 048
     Dates: start: 20230112, end: 20230124
  3. AMLODIPINE [Concomitant]
     Active Substance: AMLODIPINE BESYLATE
     Indication: Hypertension
     Dosage: 5 MILLIGRAM
     Route: 048
     Dates: start: 20230116, end: 20230124
  4. CEFTRIAXONE [Concomitant]
     Active Substance: CEFTRIAXONE\CEFTRIAXONE SODIUM
     Indication: Urinary tract infection
     Dosage: 1 GRAM
     Route: 042
     Dates: start: 20230112, end: 20230117
  5. CHOLECALCIFEROL [Concomitant]
     Active Substance: CHOLECALCIFEROL
     Indication: Supplementation therapy
     Dosage: 1200 DOSAGE FORM  |  UNIT DOSE UNIT : DOSAGE FORMS
     Route: 048
     Dates: start: 20230113, end: 20230124
  6. FUROSEMIDE [Concomitant]
     Active Substance: FUROSEMIDE
     Indication: Oedema
     Dosage: 40 MILLIGRAM
     Route: 042
     Dates: start: 20230112, end: 20230116
  7. GABAPENTIN [Concomitant]
     Active Substance: GABAPENTIN
     Indication: Pain
     Dosage: 300 MILLIGRAM, BID
     Route: 048
     Dates: start: 20230112, end: 20230124
  8. INSULIN GLARGINE [Concomitant]
     Active Substance: INSULIN GLARGINE
     Indication: Type 1 diabetes mellitus
     Dosage: 5 DOSAGE FORM  |  UNIT DOSE UNIT : DOSAGE FORMS
     Route: 058
     Dates: start: 20230112, end: 20230119
  9. LIDOCAINE [Concomitant]
     Active Substance: LIDOCAINE
     Indication: Pain
     Dosage: 4 %
     Route: 062
     Dates: start: 20230112, end: 20230124
  10. LIPASE;PROTEASE;AMYLASE [Concomitant]
     Indication: Pancreatic enzyme replacement therapy
     Dosage: 10000, 35500, 61500 UNITS
     Route: 048
     Dates: start: 20230112, end: 20230124
  11. LOPERAMIDE [Concomitant]
     Active Substance: LOPERAMIDE
     Indication: Diarrhoea
     Dosage: 4 MILLIGRAM, Q6H
     Route: 048
     Dates: start: 20230112, end: 20230120
  12. MAGNESIUM OXIDE [Concomitant]
     Active Substance: MAGNESIUM OXIDE
     Indication: Supplementation therapy
     Dosage: 400 MILLIGRAM, BID
     Route: 048
     Dates: start: 20230112, end: 20230124
  13. ACETAMINOPHEN\OXYCODONE HYDROCHLORIDE [Concomitant]
     Active Substance: ACETAMINOPHEN\OXYCODONE HYDROCHLORIDE
     Indication: Pain
     Dosage: 7,5-325 MG
     Route: 048
     Dates: start: 20230123, end: 20230124
  14. PANTOPRAZOLE [Concomitant]
     Active Substance: PANTOPRAZOLE
     Indication: Gastrooesophageal reflux disease
     Dosage: 40 MILLIGRAM
     Route: 048
     Dates: start: 20230113, end: 20230124
  15. SODIUM BICARBONATE [Concomitant]
     Active Substance: SODIUM BICARBONATE
     Indication: Product used for unknown indication
     Dosage: 650 MILLIGRAM, Q8H
     Route: 048
     Dates: start: 20230112, end: 20230124
  16. TAMSULOSIN [Concomitant]
     Active Substance: TAMSULOSIN
     Indication: Product used for unknown indication
     Dosage: .4 MILLIGRAM
     Route: 048
     Dates: start: 20230118, end: 20230124
  17. TORSEMIDE [Concomitant]
     Active Substance: TORSEMIDE
     Indication: Oedema
     Dosage: 20MG-60MG
     Route: 048
     Dates: start: 20230117, end: 20230124
  18. TRAMADOL [Concomitant]
     Active Substance: TRAMADOL\TRAMADOL HYDROCHLORIDE
     Indication: Pain
     Dosage: 50 MILLIGRAM
     Route: 048
     Dates: start: 20230113, end: 20230123
  19. VANCOMYCIN [Concomitant]
     Active Substance: VANCOMYCIN
     Indication: Clostridium difficile infection
     Dosage: 125 MILLIGRAM, Q6H
     Route: 048
     Dates: start: 20230116, end: 20230124
  20. ZOLPIDEM [Concomitant]
     Active Substance: ZOLPIDEM TARTRATE
     Indication: Insomnia
     Dosage: 5-7.5 MG
     Route: 048
     Dates: start: 20230114, end: 20230124

REACTIONS (2)
  - Extravasation [Unknown]
  - Infusion site erythema [Unknown]

NARRATIVE: CASE EVENT DATE: 20230123
